FAERS Safety Report 5748991-0 (Version None)
Quarter: 2008Q2

REPORT INFORMATION
  Report Type: 
  Country: None (occurrence: None)
  Receive Date: 20080527
  Receipt Date: 20080513
  Transmission Date: 20081010
  Serious: Yes (Hospitalization)
  Sender: FDA-Public Use
  Company Number: AT-ELI_LILLY_AND_COMPANY-AT200805002760

PATIENT
  Age: 34 Year
  Sex: Male
  Weight: 70 kg

DRUGS (12)
  1. ZYPREXA [Suspect]
     Indication: MANIA
     Dosage: 2.5 MG, UNKNOWN
     Route: 065
     Dates: start: 20071214, end: 20071214
  2. ZYPREXA [Suspect]
     Dosage: 5 MG, UNKNOWN
     Route: 065
     Dates: start: 20071215, end: 20071215
  3. ZYPREXA [Suspect]
     Dosage: 10 MG, DAILY (1/D)
     Route: 065
     Dates: start: 20071216, end: 20071219
  4. ZYPREXA [Suspect]
     Dosage: 30 MG, DAILY (1/D)
     Route: 065
     Dates: start: 20071220
  5. LAMICTAL [Concomitant]
     Dosage: 300 MG, DAILY (1/D)
     Route: 065
     Dates: start: 20030101
  6. PRAXITEN [Concomitant]
     Dosage: 25 MG, DAILY (1/D)
     Route: 065
     Dates: start: 20071215, end: 20071217
  7. PRAXITEN [Concomitant]
     Dosage: 75 MG, DAILY (1/D)
     Route: 065
     Dates: start: 20071218, end: 20080211
  8. PRAXITEN [Concomitant]
     Dosage: 65 MG, DAILY (1/D)
     Route: 065
     Dates: start: 20080212, end: 20080212
  9. PRAXITEN [Concomitant]
     Dosage: 55 MG, DAILY (1/D)
     Route: 065
     Dates: start: 20080213, end: 20080213
  10. PRAXITEN [Concomitant]
     Dosage: 40 MG, DAILY (1/D)
     Route: 065
     Dates: start: 20080214, end: 20080215
  11. DOMINAL FORTE [Concomitant]
     Dosage: 80 MG, DAILY (1/D)
     Route: 065
     Dates: start: 20080110, end: 20080207
  12. DOMINAL FORTE [Concomitant]
     Dosage: 160 MG, EACH EVENING
     Route: 065
     Dates: start: 20080208

REACTIONS (3)
  - HOSPITALISATION [None]
  - OVERDOSE [None]
  - WEIGHT INCREASED [None]
